FAERS Safety Report 18184552 (Version 2)
Quarter: 2020Q3

REPORT INFORMATION
  Report Type: Spontaneous
  Country: US (occurrence: US)
  Receive Date: 20200824
  Receipt Date: 20200907
  Transmission Date: 20201103
  Serious: Yes (Death)
  Sender: FDA-Public Use
  Company Number: US-ROCHE-2628778

PATIENT
  Age: 68 Year
  Sex: Male
  Weight: 86 kg

DRUGS (1)
  1. ACTEMRA [Suspect]
     Active Substance: TOCILIZUMAB
     Indication: COVID-19 PNEUMONIA
     Dosage: ONCE
     Route: 040
     Dates: start: 20200412, end: 20200412

REACTIONS (3)
  - Off label use [Unknown]
  - Intentional product use issue [Unknown]
  - Multiple organ dysfunction syndrome [Fatal]

NARRATIVE: CASE EVENT DATE: 20200412
